FAERS Safety Report 14530182 (Version 1)
Quarter: 2018Q1

REPORT INFORMATION
  Report Type: Spontaneous
  Country: GB (occurrence: GB)
  Receive Date: 20180214
  Receipt Date: 20180214
  Transmission Date: 20180509
  Serious: Yes (Other)
  Sender: FDA-Public Use
  Company Number: GB-JNJFOC-20180219218

PATIENT
  Age: 50 Year
  Sex: Female
  Weight: 70 kg

DRUGS (1)
  1. AXERT [Suspect]
     Active Substance: ALMOTRIPTAN MALATE
     Indication: MIGRAINE
     Route: 048
     Dates: start: 20170919, end: 20170919

REACTIONS (4)
  - Left ventricular dysfunction [Unknown]
  - Angina pectoris [Unknown]
  - Coronary artery dissection [Recovered/Resolved]
  - Electrocardiogram change [Unknown]

NARRATIVE: CASE EVENT DATE: 20170919
